FAERS Safety Report 19074060 (Version 2)
Quarter: 2021Q3

REPORT INFORMATION
  Report Type: Spontaneous
  Country: US (occurrence: US)
  Receive Date: 20210330
  Receipt Date: 20210722
  Transmission Date: 20211014
  Serious: No
  Sender: FDA-Public Use
  Company Number: US-SA-2021SA104630

PATIENT
  Age: 63 Year
  Sex: Male

DRUGS (3)
  1. ZYRTEC [Concomitant]
     Active Substance: CETIRIZINE HYDROCHLORIDE
  2. DUPIXENT [Suspect]
     Active Substance: DUPILUMAB
     Indication: DERMATITIS ATOPIC
     Dosage: 300 MG, QOW
     Route: 058
     Dates: start: 20210318
  3. COVID?19 VACCINE [Concomitant]
     Indication: COVID-19 IMMUNISATION

REACTIONS (5)
  - Joint swelling [Unknown]
  - Erythema [Unknown]
  - Sensitivity to weather change [Unknown]
  - Hyperaesthesia [Unknown]
  - Dermatitis atopic [Unknown]

NARRATIVE: CASE EVENT DATE: 2021
